FAERS Safety Report 16415070 (Version 1)
Quarter: 2019Q2

REPORT INFORMATION
  Report Type: Spontaneous
  Country: US (occurrence: US)
  Receive Date: 20190611
  Receipt Date: 20190611
  Transmission Date: 20190711
  Serious: No
  Sender: FDA-Public Use
  Company Number: US-SEPTODONT-201804848

PATIENT
  Age: 38 Year
  Sex: Male

DRUGS (5)
  1. BRIO [CORRECTED TO BREO ELLIPTA] [Concomitant]
     Indication: ASTHMA
     Dosage: 100 MG QD
  2. ALBUTEROL (VENTOLIN) [Concomitant]
     Indication: ASTHMA
     Dosage: PRN [AS THE CIRCUMSTANCES ARISE]
  3. ARTICAINE 4% 1:100K [Suspect]
     Active Substance: ARTICAINE HYDROCHLORIDE\EPINEPHRINE BITARTRATE
     Indication: DENTAL LOCAL ANAESTHESIA
     Dosage: TOOTH 10, 1 CARPULE + TOOTH 11, 3/4 CARPULE INTRALIG
     Route: 004
     Dates: start: 20180906, end: 20180906
  4. PERCOCET [Concomitant]
     Active Substance: ACETAMINOPHEN\OXYCODONE HYDROCHLORIDE
     Indication: PRODUCT USED FOR UNKNOWN INDICATION
  5. PRAMIPEXOLE. [Concomitant]
     Active Substance: PRAMIPEXOLE
     Indication: RESTLESS LEGS SYNDROME
     Dosage: QD [ONE A DAY]

REACTIONS (3)
  - Pallor [Recovered/Resolved]
  - Oropharyngeal plaque [Unknown]
  - Leukoplakia oral [Recovered/Resolved]

NARRATIVE: CASE EVENT DATE: 20180913
